FAERS Safety Report 7111319-8 (Version None)
Quarter: 2010Q4

REPORT INFORMATION
  Report Type: 
  Country: None (occurrence: None)
  Receive Date: 20101118
  Receipt Date: 20101105
  Transmission Date: 20110411
  Serious: Yes (Other)
  Sender: FDA-Public Use
  Company Number: PHHY2010GT75131

PATIENT
  Age: 10 Year
  Sex: Male

DRUGS (1)
  1. EXJADE [Suspect]
     Indication: SICKLE CELL ANAEMIA
     Dosage: 500 MG PER DAY
     Route: 048
     Dates: start: 20100201

REACTIONS (3)
  - DEEP VEIN THROMBOSIS [None]
  - HAEMOLYSIS [None]
  - SPLENECTOMY [None]
